FAERS Safety Report 5052002-2 (Version None)
Quarter: 2006Q3

REPORT INFORMATION
  Report Type: 
  Country: None (occurrence: None)
  Receive Date: 20060711
  Receipt Date: 20060629
  Transmission Date: 20061208
  Serious: Yes (Other)
  Sender: FDA-Public Use
  Company Number: S06-USA-02485-01

PATIENT
  Age: 73 Year
  Sex: Female

DRUGS (1)
  1. NAMENDA [Suspect]
     Dates: start: 20060501

REACTIONS (1)
  - RECTAL HAEMORRHAGE [None]
